FAERS Safety Report 11740887 (Version 1)
Quarter: 2015Q4

REPORT INFORMATION
  Report Type: Report from Study
  Country: GB (occurrence: GB)
  Receive Date: 20151115
  Receipt Date: 20151115
  Transmission Date: 20160304
  Serious: Yes (Hospitalization)
  Sender: FDA-Public Use
  Company Number: GB-EMD SERONO-8053004

PATIENT
  Sex: Male

DRUGS (1)
  1. SAIZEN [Suspect]
     Active Substance: SOMATROPIN
     Indication: GROWTH HORMONE DEFICIENCY
     Dosage: FORM OF ADMIN AND STRENGTH: LIQUID 6MG/1.03ML SOLUTION. UNKNOWN DOSE AS DIRECTED

REACTIONS (1)
  - Myocardial infarction [Unknown]
